FAERS Safety Report 23779274 (Version 1)
Quarter: 2024Q2

REPORT INFORMATION
  Report Type: Spontaneous
  Country: US (occurrence: None)
  Receive Date: 20240424
  Receipt Date: 20240424
  Transmission Date: 20240715
  Serious: Yes (Other)
  Sender: FDA-Public Use
  Company Number: None

PATIENT
  Age: 83 Year
  Sex: Male
  Weight: 72.45 kg

DRUGS (5)
  1. VTAMA [Suspect]
     Active Substance: TAPINAROF
     Indication: Psoriasis
     Dosage: OTHER QUANTITY : 1 THIN LAYER?FREQUENCY : DAILY?
     Route: 061
     Dates: start: 20230801
  2. Resovstatin [Concomitant]
  3. VTAMA [Concomitant]
     Active Substance: TAPINAROF
  4. NM-6603 [Concomitant]
     Active Substance: NM-6603
  5. multivitamin chewable [Concomitant]

REACTIONS (1)
  - Squamous cell carcinoma [None]

NARRATIVE: CASE EVENT DATE: 20240201
